FAERS Safety Report 6809278-8 (Version None)
Quarter: 2010Q2

REPORT INFORMATION
  Report Type: 
  Country: None (occurrence: None)
  Receive Date: 20100630
  Receipt Date: 20100622
  Transmission Date: 20101027
  Serious: Yes (Other)
  Sender: FDA-Public Use
  Company Number: NL-EISAI INC.-E3810-03904-SPO-NL

PATIENT
  Age: 31 Year
  Sex: Male

DRUGS (1)
  1. PARIET (RABEPRAZOLE) [Suspect]
     Indication: GASTRIC DISORDER
     Dosage: UNKNOWN
     Route: 048

REACTIONS (1)
  - WEIGHT DECREASED [None]
